FAERS Safety Report 18442984 (Version 1)
Quarter: 2020Q4

REPORT INFORMATION
  Report Type: Spontaneous
  Country: KR (occurrence: KR)
  Receive Date: 20201029
  Receipt Date: 20201029
  Transmission Date: 20210114
  Serious: Yes (Hospitalization, Other)
  Sender: FDA-Public Use
  Company Number: KR-SLATE RUN PHARMACEUTICALS-20KR000306

PATIENT

DRUGS (13)
  1. PROPANOLOL [PROPRANOLOL] [Concomitant]
     Active Substance: PROPRANOLOL HYDROCHLORIDE
     Indication: HYPERTENSION
     Route: 065
  2. VORICONAZOLE. [Interacting]
     Active Substance: VORICONAZOLE
     Dosage: 200 MILLIGRAM, BID
     Route: 048
  3. CALCIUM GLUCONATE. [Suspect]
     Active Substance: CALCIUM GLUCONATE
     Indication: PRODUCT USED FOR UNKNOWN INDICATION
     Route: 042
  4. AMLODIPINE [Concomitant]
     Active Substance: AMLODIPINE BESYLATE
     Indication: PRODUCT USED FOR UNKNOWN INDICATION
     Route: 065
  5. VORICONAZOLE. [Suspect]
     Active Substance: VORICONAZOLE
     Indication: BRONCHOPULMONARY ASPERGILLOSIS
     Dosage: 100 MILLIGRAM, BID
     Route: 048
  6. METFORMIN [Concomitant]
     Active Substance: METFORMIN HYDROCHLORIDE
     Indication: PRODUCT USED FOR UNKNOWN INDICATION
     Route: 065
  7. ITRACONAZOLE. [Concomitant]
     Active Substance: ITRACONAZOLE
     Indication: BRONCHOPULMONARY ASPERGILLOSIS
     Dosage: 200 MILLIGRAM, QD
     Route: 065
  8. SPIRONOLACTONE. [Interacting]
     Active Substance: SPIRONOLACTONE
     Indication: PRODUCT USED FOR UNKNOWN INDICATION
     Route: 065
  9. MANIDIPINE [Interacting]
     Active Substance: MANIDIPINE
     Indication: HYPERTENSION
     Route: 065
  10. GLIMEPIRIDE. [Concomitant]
     Active Substance: GLIMEPIRIDE
     Indication: PRODUCT USED FOR UNKNOWN INDICATION
     Route: 065
  11. TELMISARTAN. [Interacting]
     Active Substance: TELMISARTAN
     Indication: PRODUCT USED FOR UNKNOWN INDICATION
     Route: 065
  12. DRONEDARONE [Interacting]
     Active Substance: DRONEDARONE
     Indication: ATRIAL FIBRILLATION
     Dosage: 400 MILLIGRAM, BID
     Route: 065
  13. ITRACONAZOLE. [Concomitant]
     Active Substance: ITRACONAZOLE
     Dosage: UNK
     Route: 065

REACTIONS (22)
  - Atrial fibrillation [Recovered/Resolved]
  - Toxicity to various agents [Unknown]
  - Hypercalcaemia [Recovered/Resolved]
  - Blood pressure diastolic decreased [Unknown]
  - Hyperkalaemia [Recovered/Resolved]
  - Vitamin D decreased [Unknown]
  - Monoclonal gammopathy [Unknown]
  - Light chain disease [Unknown]
  - Drug interaction [Unknown]
  - Blood aldosterone decreased [Unknown]
  - Azotaemia [Recovered/Resolved]
  - Hyponatraemia [Recovered/Resolved]
  - Gait disturbance [Unknown]
  - Bradyarrhythmia [Recovered/Resolved]
  - Atrioventricular block [Recovered/Resolved]
  - Haemoptysis [Unknown]
  - Blood phosphorus increased [Recovered/Resolved]
  - Bundle branch block left [Unknown]
  - Renin decreased [Unknown]
  - Renal impairment [Unknown]
  - Quadriparesis [Unknown]
  - Dysarthria [Unknown]
